FAERS Safety Report 10440044 (Version 3)
Quarter: 2014Q4

REPORT INFORMATION
  Report Type: Spontaneous
  Country: CA (occurrence: None)
  Receive Date: 20140905
  Receipt Date: 20141120
  Transmission Date: 20150528
  Serious: Yes (Hospitalization, Other)
  Sender: FDA-Public Use
  Company Number: CA-016967

PATIENT
  Age: 74 Year
  Sex: Male

DRUGS (11)
  1. CARVEDILOL. [Concomitant]
     Active Substance: CARVEDILOL
  2. ADVAIR HFA [Concomitant]
     Active Substance: FLUTICASONE PROPIONATE\SALMETEROL XINAFOATE
  3. WARFARIN [Concomitant]
     Active Substance: WARFARIN
  4. ATORVASTATIN [Concomitant]
     Active Substance: ATORVASTATIN
  5. LORAZEPAM. [Concomitant]
     Active Substance: LORAZEPAM
  6. VENTOLINE /00139501/ [Concomitant]
  7. FIRMAGON [Suspect]
     Active Substance: DEGARELIX ACETATE
     Indication: PROSTATE CANCER
     Dosage: 80 MG 1X/MONTH SUBCUTANEOUS
     Route: 058
     Dates: start: 20140303
  8. DIAMICRON [Concomitant]
     Active Substance: GLICLAZIDE
  9. CANDESARTAN [Concomitant]
     Active Substance: CANDESARTAN
  10. FUROSEMIDE. [Concomitant]
     Active Substance: FUROSEMIDE
  11. ATROVENT [Concomitant]
     Active Substance: IPRATROPIUM BROMIDE

REACTIONS (6)
  - Dry skin [None]
  - Diarrhoea [None]
  - Hepatic cancer [None]
  - Skin reaction [None]
  - Facial pain [None]
  - Herpes zoster [None]
